FAERS Safety Report 13752808 (Version 1)
Quarter: 2017Q3

REPORT INFORMATION
  Report Type: Spontaneous
  Country: US (occurrence: US)
  Receive Date: 20170713
  Receipt Date: 20170713
  Transmission Date: 20171127
  Serious: Yes (Life-Threatening, Disabling)
  Sender: FDA-Public Use
  Company Number: None

PATIENT
  Age: 45 Year
  Sex: Male
  Weight: 76.5 kg

DRUGS (4)
  1. LEVIFLOXACIN [Suspect]
     Active Substance: LEVOFLOXACIN
     Indication: CYSTITIS
     Dosage: ?          OTHER STRENGTH:GM;QUANTITY:2 CAPSULE(S);?
     Route: 048
     Dates: start: 20160628, end: 20160630
  2. IBUPROFIN [Concomitant]
     Active Substance: IBUPROFEN
  3. TYDENOL [Concomitant]
  4. ALEVE [Concomitant]
     Active Substance: NAPROXEN SODIUM

REACTIONS (5)
  - Muscular weakness [None]
  - Arthralgia [None]
  - Tendon pain [None]
  - Nerve injury [None]
  - Myalgia [None]

NARRATIVE: CASE EVENT DATE: 20160628
